FAERS Safety Report 24874271 (Version 1)
Quarter: 2025Q1

REPORT INFORMATION
  Report Type: Spontaneous
  Country: SA (occurrence: SA)
  Receive Date: 20250122
  Receipt Date: 20250122
  Transmission Date: 20250409
  Serious: Yes (Life-Threatening, Hospitalization)
  Sender: PERRIGO
  Company Number: SA-MLMSERVICE-20250107-PI337959-00120-1

PATIENT
  Age: 27 Year
  Sex: Male

DRUGS (1)
  1. DICLOFENAC SODIUM [Suspect]
     Active Substance: DICLOFENAC SODIUM
     Indication: Musculoskeletal chest pain
     Route: 065

REACTIONS (1)
  - Haemorrhagic cholecystitis [Recovering/Resolving]
